FAERS Safety Report 19712477 (Version 7)
Quarter: 2022Q4

REPORT INFORMATION
  Report Type: Report from Study
  Country: US (occurrence: US)
  Receive Date: 20210817
  Receipt Date: 20221226
  Transmission Date: 20230113
  Serious: Yes (Other)
  Sender: FDA-Public Use
  Company Number: US-BOEHRINGERINGELHEIM-2021-BI-121945

PATIENT
  Age: 71 Year
  Sex: Female
  Weight: 95.2 kg

DRUGS (11)
  1. OFEV [Suspect]
     Active Substance: NINTEDANIB
     Indication: Interstitial lung disease
     Route: 048
     Dates: start: 20210101
  2. OFEV [Suspect]
     Active Substance: NINTEDANIB
     Indication: Idiopathic pulmonary fibrosis
  3. TYVASO [Suspect]
     Active Substance: TREPROSTINIL
     Indication: Pulmonary arterial hypertension
     Dosage: 60-120 ?G - DELIVERED BY TYVASO INHALATION DEVICE (TD-300/A)
     Route: 055
     Dates: start: 20210623
  4. TYVASO [Suspect]
     Active Substance: TREPROSTINIL
     Dosage: 18-54 ?G
     Route: 055
     Dates: start: 2021
  5. TYVASO [Suspect]
     Active Substance: TREPROSTINIL
     Route: 055
     Dates: start: 2021, end: 2021
  6. TYVASO [Suspect]
     Active Substance: TREPROSTINIL
     Dates: start: 2021
  7. TYVASO [Suspect]
     Active Substance: TREPROSTINIL
     Route: 055
  8. TYVASO [Suspect]
     Active Substance: TREPROSTINIL
     Route: 055
  9. TYVASO [Suspect]
     Active Substance: TREPROSTINIL
     Route: 055
  10. TYVASO [Suspect]
     Active Substance: TREPROSTINIL
     Route: 055
  11. TYVASO [Suspect]
     Active Substance: TREPROSTINIL
     Dosage: 6 BREATHS

REACTIONS (15)
  - Headache [Unknown]
  - Haematochezia [Unknown]
  - Pulmonary hypertension [Unknown]
  - Abdominal pain upper [Not Recovered/Not Resolved]
  - Diarrhoea [Not Recovered/Not Resolved]
  - Decreased appetite [Not Recovered/Not Resolved]
  - Fall [Unknown]
  - Arthritis [Unknown]
  - Headache [Unknown]
  - Nausea [Recovering/Resolving]
  - Vomiting [Unknown]
  - Retching [Unknown]
  - Gout [Unknown]
  - Colitis [Unknown]
  - Oedema [Recovering/Resolving]

NARRATIVE: CASE EVENT DATE: 20210101
